FAERS Safety Report 5519160-4 (Version None)
Quarter: 2007Q4

REPORT INFORMATION
  Report Type: 
  Country: None (occurrence: None)
  Receive Date: 20071116
  Receipt Date: 20071106
  Transmission Date: 20080405
  Serious: Yes (Hospitalization, Other)
  Sender: FDA-Public Use
  Company Number: JP-NOVOPROD-269184

PATIENT
  Age: 75 Year
  Sex: Female

DRUGS (4)
  1. NOVORAPID CHU [Suspect]
     Indication: INSULIN-REQUIRING TYPE II DIABETES MELLITUS
     Route: 058
     Dates: start: 20060801
  2. PENFILL N CHU [Suspect]
     Route: 058
     Dates: start: 20060801
  3. THYRADIN [Concomitant]
     Indication: HYPOTHYROIDISM
     Dosage: 25 UG, QD
     Route: 048
  4. PREDNISOLONE [Concomitant]
     Indication: MUSCULOSKELETAL PAIN
     Dosage: 5 MG, QD
     Route: 048

REACTIONS (3)
  - CALCULUS URINARY [None]
  - HYPOGLYCAEMIA [None]
  - PYELONEPHRITIS [None]
